FAERS Safety Report 9374156 (Version 1)
Quarter: 2013Q2

REPORT INFORMATION
  Report Type: Spontaneous
  Country: US (occurrence: US)
  Receive Date: 20130628
  Receipt Date: 20130628
  Transmission Date: 20140414
  Serious: No
  Sender: FDA-Public Use
  Company Number: US-BIOGENIDEC-2013BI056456

PATIENT
  Age: 40 Year
  Sex: Female

DRUGS (5)
  1. AVONEX [Suspect]
     Indication: PRODUCT USED FOR UNKNOWN INDICATION
     Route: 030
  2. DEMEROL [Concomitant]
  3. FENTANYL [Concomitant]
  4. TOPAMAX [Concomitant]
  5. FLEXERIL [Concomitant]

REACTIONS (2)
  - Visual impairment [Unknown]
  - Dyspnoea [Unknown]
